FAERS Safety Report 15785814 (Version 1)
Quarter: 2019Q1

REPORT INFORMATION
  Report Type: Report from Study
  Country: US (occurrence: US)
  Receive Date: 20190103
  Receipt Date: 20190103
  Transmission Date: 20190417
  Serious: Yes (Hospitalization, Other)
  Sender: FDA-Public Use
  Company Number: US-GILEAD-2018-0382503

PATIENT
  Age: 47 Year
  Sex: Female

DRUGS (17)
  1. REMODULIN [Concomitant]
     Active Substance: TREPROSTINIL
  2. VIRTUSSIN AC [Concomitant]
     Active Substance: CODEINE PHOSPHATE\GUAIFENESIN
  3. PREDNISONE. [Concomitant]
     Active Substance: PREDNISONE
  4. ONDANSETRON [Concomitant]
     Active Substance: ONDANSETRON
  5. ALBUTEROL SULFATE. [Concomitant]
     Active Substance: ALBUTEROL SULFATE
  6. MORPHINE [Concomitant]
     Active Substance: MORPHINE
  7. NYSTATIN. [Concomitant]
     Active Substance: NYSTATIN
  8. LACTULOSE. [Concomitant]
     Active Substance: LACTULOSE
  9. LOPERAMIDE [Concomitant]
     Active Substance: LOPERAMIDE
  10. PROCHLORPERAZINE. [Concomitant]
     Active Substance: PROCHLORPERAZINE
  11. AMBIEN [Concomitant]
     Active Substance: ZOLPIDEM TARTRATE
  12. FLUOXETINE [Concomitant]
     Active Substance: FLUOXETINE HYDROCHLORIDE
  13. SPIRIVA [Concomitant]
     Active Substance: TIOTROPIUM BROMIDE MONOHYDRATE
  14. AMBRISENTAN [Suspect]
     Active Substance: AMBRISENTAN
     Indication: PULMONARY HYPERTENSION
     Dosage: 10 MG, QD
     Route: 065
  15. ADEMPAS [Concomitant]
     Active Substance: RIOCIGUAT
  16. MIDODRINE [Concomitant]
     Active Substance: MIDODRINE
  17. ALPRAZOLAM. [Concomitant]
     Active Substance: ALPRAZOLAM

REACTIONS (5)
  - Intestinal obstruction [Recovered/Resolved]
  - Muscle atrophy [Unknown]
  - Fall [Recovered/Resolved]
  - Hypotension [Recovered/Resolved]
  - Pneumonia [Recovered/Resolved]

NARRATIVE: CASE EVENT DATE: 20181017
